FAERS Safety Report 20127536 (Version 1)
Quarter: 2021Q4

REPORT INFORMATION
  Report Type: Spontaneous
  Country: US (occurrence: None)
  Receive Date: 20211129
  Receipt Date: 20211129
  Transmission Date: 20220304
  Serious: Yes (Other)
  Sender: FDA-Public Use
  Company Number: None

PATIENT
  Age: 56 Year
  Sex: Female

DRUGS (1)
  1. HUMIRA [Suspect]
     Active Substance: ADALIMUMAB
     Dosage: OTHER FREQUENCY : EVERY 14 DAYS;?
     Dates: start: 20211028

REACTIONS (3)
  - Fatigue [None]
  - Toothache [None]
  - Hypotension [None]

NARRATIVE: CASE EVENT DATE: 20211127
